FAERS Safety Report 8541093-X (Version None)
Quarter: 2012Q3

REPORT INFORMATION
  Report Type: 
  Country: None (occurrence: None)
  Receive Date: 20120726
  Receipt Date: 20111003
  Transmission Date: 20120928
  Serious: No
  Sender: FDA-Public Use
  Company Number: US-ASTRAZENECA-2011SE49358

PATIENT
  Age: 50 Year
  Sex: Female
  Weight: 68 kg

DRUGS (6)
  1. SEROQUEL XR [Suspect]
     Indication: BIPOLAR DISORDER
     Route: 048
  2. AMBBAN [Concomitant]
     Indication: SLEEP DISORDER
  3. ESTRADIOL [Concomitant]
     Indication: HORMONE THERAPY
  4. LORAZEPAM [Concomitant]
     Indication: ANXIETY
  5. SEROQUEL XR [Suspect]
     Route: 048
     Dates: start: 20110601
  6. PROZAC [Suspect]
     Route: 065

REACTIONS (11)
  - IRRITABILITY [None]
  - INCREASED APPETITE [None]
  - ILL-DEFINED DISORDER [None]
  - DRY MOUTH [None]
  - MALAISE [None]
  - DRUG DOSE OMISSION [None]
  - DEPRESSED MOOD [None]
  - FATIGUE [None]
  - HOT FLUSH [None]
  - STOMATITIS [None]
  - FEELING GUILTY [None]
